FAERS Safety Report 9620907 (Version 2)
Quarter: 2014Q1

REPORT INFORMATION
  Report Type: Spontaneous
  Country: US (occurrence: US)
  Receive Date: 20131015
  Receipt Date: 20140113
  Transmission Date: 20141002
  Serious: Yes (Other)
  Sender: FDA-Public Use
  Company Number: US-JNJFOC-20131006140

PATIENT
  Age: 79 Year
  Sex: Female

DRUGS (4)
  1. GALANTAMINE HBR [Suspect]
     Indication: DEMENTIA ALZHEIMER^S TYPE
     Route: 065
  2. METOPROLOL TARTRATE [Concomitant]
     Indication: HYPERTENSION
     Route: 065
  3. MULTIVITAMINS DAILY [Concomitant]
     Route: 065
  4. ACETAMINOPHEN [Concomitant]
     Indication: OSTEOARTHRITIS
     Route: 065

REACTIONS (1)
  - Pemphigoid [Recovered/Resolved]
